FAERS Safety Report 7459552-X (Version None)
Quarter: 2011Q2

REPORT INFORMATION
  Report Type: 
  Country: None (occurrence: None)
  Receive Date: 20110505
  Receipt Date: 20110426
  Transmission Date: 20111010
  Serious: Yes (Hospitalization)
  Sender: FDA-Public Use
  Company Number: FR-BRISTOL-MYERS SQUIBB COMPANY-15705197

PATIENT
  Age: 79 Year
  Sex: Female

DRUGS (4)
  1. IRBESARTAN AND HYDROCHLOROTHIAZIDE [Suspect]
     Dosage: AUTHORIZATION NO:20-758
     Route: 048
     Dates: end: 20110112
  2. SIMVASTATIN [Concomitant]
     Route: 048
     Dates: end: 20110112
  3. KARDEGIC [Concomitant]
     Route: 048
     Dates: end: 20110112
  4. ZANIDIP [Concomitant]
     Route: 048
     Dates: end: 20110112

REACTIONS (3)
  - RENAL FAILURE [None]
  - DEHYDRATION [None]
  - ABNORMAL BEHAVIOUR [None]
